FAERS Safety Report 15638633 (Version 1)
Quarter: 2018Q4

REPORT INFORMATION
  Report Type: Spontaneous
  Country: US (occurrence: US)
  Receive Date: 20181120
  Receipt Date: 20181120
  Transmission Date: 20190205
  Serious: No
  Sender: FDA-Public Use
  Company Number: US-JNJFOC-20181115302

PATIENT
  Sex: Female
  Weight: 56.69 kg

DRUGS (7)
  1. IMBRUVICA [Suspect]
     Active Substance: IBRUTINIB
     Indication: GRAFT VERSUS HOST DISEASE
     Dosage: 420 MG, QD
     Route: 048
     Dates: start: 2018
  2. PREDNISONE. [Concomitant]
     Active Substance: PREDNISONE
  3. URSODIOL. [Concomitant]
     Active Substance: URSODIOL
  4. PENICILLIN VK [Concomitant]
     Active Substance: PENICILLIN V POTASSIUM
  5. IMBRUVICA [Suspect]
     Active Substance: IBRUTINIB
     Indication: GRAFT VERSUS HOST DISEASE
     Route: 048
     Dates: start: 2018, end: 2018
  6. BACTRIM [Concomitant]
     Active Substance: SULFAMETHOXAZOLE\TRIMETHOPRIM
  7. ACYCLOVIR. [Concomitant]
     Active Substance: ACYCLOVIR

REACTIONS (11)
  - Secretion discharge [Unknown]
  - Asthenia [Unknown]
  - Vision blurred [Unknown]
  - Oedema peripheral [Unknown]
  - Fatigue [Unknown]
  - Oral pain [Unknown]
  - Eating disorder [Unknown]
  - Drug ineffective [Unknown]
  - Lip pain [Unknown]
  - Anaemia [Unknown]
  - Skin discolouration [Unknown]

NARRATIVE: CASE EVENT DATE: 2018
